FAERS Safety Report 8544130 (Version 3)
Quarter: 2012Q4

REPORT INFORMATION
  Report Type: Report from Study
  Country: GB (occurrence: GB)
  Receive Date: 20120503
  Receipt Date: 20121015
  Transmission Date: 20130627
  Serious: Yes (Hospitalization, Other)
  Sender: FDA-Public Use
  Company Number: GB-NOVOPROD-350132

PATIENT
  Age: 48 Year
  Sex: Female
  Weight: 119.3 kg

DRUGS (1)
  1. LIRAGLUTIDE FLEXPEN [Suspect]
     Indication: OBESITY
     Dosage: 3.0 mg, qd
     Route: 058
     Dates: start: 20111025

REACTIONS (2)
  - Cholecystitis acute [Recovered/Resolved]
  - Cholelithiasis [Recovered/Resolved]
